FAERS Safety Report 6760688-7 (Version None)
Quarter: 2010Q2

REPORT INFORMATION
  Report Type: 
  Country: None (occurrence: None)
  Receive Date: 20100607
  Receipt Date: 20100607
  Transmission Date: 20101027
  Serious: Yes (Other)
  Sender: FDA-Public Use
  Company Number: None

PATIENT
  Age: 44 Year
  Sex: Female
  Weight: 102.5129 kg

DRUGS (1)
  1. ANGIOMAX [Suspect]
     Indication: PERCUTANEOUS CORONARY INTERVENTION
     Dosage: 80 MG ONCE IV BOLUS, 185 MG/HOUR IV DRIP
     Route: 040
     Dates: start: 20100525, end: 20100525

REACTIONS (1)
  - COAGULATION TIME SHORTENED [None]
